FAERS Safety Report 4676116-1 (Version None)
Quarter: 2005Q2

REPORT INFORMATION
  Report Type: 
  Country: None (occurrence: None)
  Receive Date: 20050527
  Receipt Date: 20050331
  Transmission Date: 20051028
  Serious: No
  Sender: FDA-Public Use
  Company Number: US-GLAXOSMITHKLINE-A0551985A

PATIENT
  Age: 25 Year
  Sex: Female

DRUGS (3)
  1. WELLBUTRIN XL [Suspect]
     Route: 048
     Dates: start: 20050309, end: 20050311
  2. WELLBUTRIN SR [Concomitant]
     Route: 048
     Dates: start: 20050225, end: 20050308
  3. EFFEXOR [Concomitant]

REACTIONS (1)
  - RASH MACULAR [None]
